FAERS Safety Report 23159292 (Version 5)
Quarter: 2025Q1

REPORT INFORMATION
  Report Type: Report from Study
  Country: US (occurrence: US)
  Receive Date: 20231108
  Receipt Date: 20250224
  Transmission Date: 20250409
  Serious: Yes (Hospitalization)
  Sender: EXELIXIS
  Company Number: US-EXELIXIS-CABO-23070178

PATIENT
  Sex: Male
  Weight: 59.41 kg

DRUGS (2)
  1. CABOMETYX [Suspect]
     Active Substance: CABOZANTINIB S-MALATE
     Indication: Renal cancer
     Dosage: 40 MG, QD
     Route: 048
     Dates: start: 20231024
  2. CABOMETYX [Suspect]
     Active Substance: CABOZANTINIB S-MALATE
     Dosage: 20 MG, QD
     Route: 048

REACTIONS (13)
  - Renal pain [Unknown]
  - Ageusia [Unknown]
  - Peripheral swelling [Not Recovered/Not Resolved]
  - Pain [Unknown]
  - Blister [Not Recovered/Not Resolved]
  - Stomatitis [Unknown]
  - Thyroid disorder [Unknown]
  - Pruritus [Unknown]
  - Skin ulcer [Unknown]
  - Blood iron decreased [Unknown]
  - Prostatic disorder [Unknown]
  - Swelling face [Not Recovered/Not Resolved]
  - Mouth swelling [Unknown]
